FAERS Safety Report 7508904-8 (Version None)
Quarter: 2011Q2

REPORT INFORMATION
  Report Type: 
  Country: None (occurrence: None)
  Receive Date: 20110527
  Receipt Date: 20110524
  Transmission Date: 20111010
  Serious: Yes (Death, Hospitalization, Other)
  Sender: FDA-Public Use
  Company Number: PHHO2010GB17228

PATIENT
  Sex: Female
  Weight: 51.5 kg

DRUGS (3)
  1. GLEEVEC [Suspect]
     Indication: PULMONARY ARTERIAL HYPERTENSION
     Dosage: UNK
     Route: 048
     Dates: start: 20101028, end: 20101109
  2. ILOPROST [Concomitant]
  3. DIURETICS [Concomitant]

REACTIONS (4)
  - RENAL IMPAIRMENT [None]
  - GENERAL PHYSICAL HEALTH DETERIORATION [None]
  - HYPONATRAEMIA [None]
  - SUBDURAL HAEMATOMA [None]
